FAERS Safety Report 13114377 (Version 1)
Quarter: 2017Q1

REPORT INFORMATION
  Report Type: Spontaneous
  Country: DE (occurrence: DE)
  Receive Date: 20170113
  Receipt Date: 20170113
  Transmission Date: 20170428
  Serious: Yes (Hospitalization)
  Sender: FDA-Public Use
  Company Number: US-ASTRAZENECA-2017SE03572

PATIENT
  Age: 317 Day
  Sex: Female
  Weight: 6 kg

DRUGS (1)
  1. SYNAGIS [Suspect]
     Active Substance: PALIVIZUMAB
     Indication: ANTIVIRAL PROPHYLAXIS
     Dosage: 90.0MG UNKNOWN
     Route: 030
     Dates: start: 20161228

REACTIONS (3)
  - Respiratory failure [Not Recovered/Not Resolved]
  - Lung hypoinflation [Not Recovered/Not Resolved]
  - Respiratory syncytial virus bronchiolitis [Not Recovered/Not Resolved]

NARRATIVE: CASE EVENT DATE: 20170103
